FAERS Safety Report 15148404 (Version 1)
Quarter: 2018Q3

REPORT INFORMATION
  Report Type: Spontaneous
  Country: FR (occurrence: FR)
  Receive Date: 20180716
  Receipt Date: 20180716
  Transmission Date: 20181010
  Serious: Yes (Hospitalization)
  Sender: FDA-Public Use
  Company Number: FR-MYLANLABS-2018M1050384

PATIENT
  Age: 65 Year
  Sex: Male
  Weight: 52.45 kg

DRUGS (14)
  1. VALIUM [Suspect]
     Active Substance: DIAZEPAM
     Indication: DEPRESSION
     Dosage: 20 MG, QD
     Route: 048
     Dates: start: 201712, end: 20180212
  2. LOVENOX [Concomitant]
     Active Substance: ENOXAPARIN SODIUM
     Indication: PRODUCT USED FOR UNKNOWN INDICATION
     Dosage: UNK
  3. CLOMIPRAMINE MYLAN 75 MG, COMPRIM? PELLICUL? S?CABLE [Suspect]
     Active Substance: CLOMIPRAMINE
     Indication: DEPRESSION
     Dosage: 150 MG, QD
     Route: 048
     Dates: start: 201712, end: 20180214
  4. TEMESTA                            /00273201/ [Suspect]
     Active Substance: LORAZEPAM
     Indication: DEPRESSION
     Dosage: 5 MG, QD
     Route: 048
     Dates: start: 201712, end: 20180213
  5. COVERSYL                           /00790703/ [Concomitant]
     Active Substance: PERINDOPRIL
     Indication: PRODUCT USED FOR UNKNOWN INDICATION
     Dosage: UNK
  6. WARFARINE [Concomitant]
     Active Substance: WARFARIN
     Indication: PRODUCT USED FOR UNKNOWN INDICATION
     Dosage: UNK
  7. AZILECT [Concomitant]
     Active Substance: RASAGILINE MESYLATE
     Indication: PRODUCT USED FOR UNKNOWN INDICATION
     Dosage: UNK
  8. MODOPAR [Concomitant]
     Active Substance: BENSERAZIDE HYDROCHLORIDE\LEVODOPA
     Indication: PRODUCT USED FOR UNKNOWN INDICATION
     Dosage: UNK
  9. MELATONINE [Concomitant]
     Active Substance: MELATONIN
     Indication: PRODUCT USED FOR UNKNOWN INDICATION
     Dosage: UNK
  10. NEUPRO [Concomitant]
     Active Substance: ROTIGOTINE
     Indication: PRODUCT USED FOR UNKNOWN INDICATION
     Dosage: UNK
  11. CLOZAPINE. [Suspect]
     Active Substance: CLOZAPINE
     Indication: PSYCHOTIC DISORDER
     Dosage: 25 MG, QD
     Route: 048
     Dates: end: 20180214
  12. MANTADIX [Concomitant]
     Active Substance: AMANTADINE HYDROCHLORIDE
     Indication: PRODUCT USED FOR UNKNOWN INDICATION
     Dosage: UNK
  13. NICOPATCH [Concomitant]
     Active Substance: NICOTINE
     Indication: PRODUCT USED FOR UNKNOWN INDICATION
     Dosage: UNK
  14. CLOMIPRAMINE [Concomitant]
     Active Substance: CLOMIPRAMINE
     Indication: PRODUCT USED FOR UNKNOWN INDICATION
     Dosage: UNK

REACTIONS (1)
  - Fall [Recovered/Resolved]

NARRATIVE: CASE EVENT DATE: 20180210
